FAERS Safety Report 5577000-1 (Version None)
Quarter: 2007Q4

REPORT INFORMATION
  Report Type: 
  Country: None (occurrence: None)
  Receive Date: 20071228
  Receipt Date: 20071220
  Transmission Date: 20080405
  Serious: Yes (Hospitalization, Other)
  Sender: FDA-Public Use
  Company Number: GB-ABBOTT-07P-167-0431057-00

PATIENT
  Age: 36 Year
  Sex: Female

DRUGS (11)
  1. HUMIRA [Suspect]
     Indication: CROHN'S DISEASE
     Dates: start: 20070801, end: 20071005
  2. HUMIRA [Suspect]
  3. HUMIRA [Suspect]
  4. AZATHIOPRINE [Suspect]
     Indication: CROHN'S DISEASE
     Dates: end: 20071005
  5. CITALOPRAM [Concomitant]
     Indication: DEPRESSED MOOD
  6. SOLIFENACIN [Concomitant]
     Indication: DRUG USE FOR UNKNOWN INDICATION
  7. FERROUS SULFATE TAB [Concomitant]
     Indication: ANAEMIA
  8. AMITRIPTLINE HCL [Concomitant]
     Indication: DEPRESSED MOOD
  9. FOLIC ACID [Concomitant]
     Indication: DRUG USE FOR UNKNOWN INDICATION
  10. LANSOPRAZOLE [Concomitant]
     Indication: DRUG USE FOR UNKNOWN INDICATION
  11. METFORMIN HCL [Concomitant]
     Indication: DRUG USE FOR UNKNOWN INDICATION

REACTIONS (2)
  - ANAEMIA [None]
  - NEUTROPENIA [None]
